FAERS Safety Report 9017333 (Version 1)
Quarter: 2013Q1

REPORT INFORMATION
  Report Type: Spontaneous
  Country: US (occurrence: US)
  Receive Date: 20130117
  Receipt Date: 20130117
  Transmission Date: 20140127
  Serious: No
  Sender: FDA-Public Use
  Company Number: US-PFIZER INC-2013016830

PATIENT
  Sex: Male

DRUGS (2)
  1. ADVIL [Suspect]
     Dosage: 120 MG, UNK
     Route: 048
  2. ADVIL [Suspect]
     Dosage: 200 MG, UNK
     Route: 048

REACTIONS (4)
  - Abdominal discomfort [Not Recovered/Not Resolved]
  - Dyspepsia [Not Recovered/Not Resolved]
  - Insomnia [Unknown]
  - Malaise [Not Recovered/Not Resolved]
